FAERS Safety Report 19409721 (Version 1)
Quarter: 2021Q2

REPORT INFORMATION
  Report Type: Spontaneous
  Country: US (occurrence: US)
  Receive Date: 20210614
  Receipt Date: 20210614
  Transmission Date: 20210717
  Serious: Yes (Death, Other)
  Sender: FDA-Public Use
  Company Number: US-PURDUE-USA-2021-0235810

PATIENT
  Sex: Male

DRUGS (14)
  1. OXYCONTIN [Suspect]
     Active Substance: OXYCODONE HYDROCHLORIDE
     Indication: NECK SURGERY
     Dosage: 40 MG, TID
     Route: 048
  2. OXYCODONE HCL TABLETS (RHODES 91?490) [Suspect]
     Active Substance: OXYCODONE HYDROCHLORIDE
     Indication: SHOULDER OPERATION
  3. HYDROCODONE BITARTRATE AND ACETAMINOPHEN [Suspect]
     Active Substance: ACETAMINOPHEN\HYDROCODONE BITARTRATE
     Indication: SHOULDER OPERATION
  4. NORCO [Suspect]
     Active Substance: ACETAMINOPHEN\HYDROCODONE BITARTRATE
     Indication: NECK SURGERY
     Dosage: UNKNOWN
     Route: 065
  5. OXYCONTIN [Suspect]
     Active Substance: OXYCODONE HYDROCHLORIDE
     Indication: SHOULDER OPERATION
  6. HYDROCODONE BITARTRATE AND ACETAMINOPHEN [Suspect]
     Active Substance: ACETAMINOPHEN\HYDROCODONE BITARTRATE
     Indication: NECK SURGERY
     Dosage: UNKNOWN
     Route: 048
  7. OXYCODONE HCL CR TABLETS (SIMILAR TO NDA 22?272) [Suspect]
     Active Substance: OXYCODONE HYDROCHLORIDE
     Indication: NECK SURGERY
     Dosage: UNKNOWN
     Route: 048
  8. SELMALEN [Suspect]
     Active Substance: OXATOMIDE
     Indication: NECK SURGERY
     Dosage: UNKNOWN
     Route: 065
  9. OXYCODONE HCL TABLETS (RHODES 91?490) [Suspect]
     Active Substance: OXYCODONE HYDROCHLORIDE
     Indication: NECK SURGERY
     Dosage: UNKNOWN
     Route: 048
  10. OXYCODONE HCL CR TABLETS (SIMILAR TO NDA 22?272) [Suspect]
     Active Substance: OXYCODONE HYDROCHLORIDE
     Indication: SHOULDER OPERATION
  11. SELMALEN [Suspect]
     Active Substance: OXATOMIDE
     Indication: SHOULDER OPERATION
  12. VALIUM [Suspect]
     Active Substance: DIAZEPAM
     Indication: SHOULDER OPERATION
  13. NORCO [Suspect]
     Active Substance: ACETAMINOPHEN\HYDROCODONE BITARTRATE
     Indication: SHOULDER OPERATION
  14. VALIUM [Suspect]
     Active Substance: DIAZEPAM
     Indication: NECK SURGERY
     Dosage: UNKNOWN
     Route: 065

REACTIONS (3)
  - Liver disorder [Unknown]
  - Drug dependence [Unknown]
  - Overdose [Fatal]

NARRATIVE: CASE EVENT DATE: 20100312
